FAERS Safety Report 9580696 (Version 1)
Quarter: 2013Q3

REPORT INFORMATION
  Report Type: Spontaneous
  Country: US (occurrence: None)
  Receive Date: 20130930
  Receipt Date: 20130930
  Transmission Date: 20140515
  Serious: Yes (Hospitalization, Other)
  Sender: FDA-Public Use
  Company Number: CA-ALSI-201300217

PATIENT
  Age: 70 Year
  Sex: Female

DRUGS (1)
  1. OXYGEN [Suspect]
     Indication: PLEURAL EFFUSION
     Dosage: 2 1 ONCE A MINUTE RESPIRATORY
     Dates: start: 20130620

REACTIONS (4)
  - Accident [None]
  - Respiratory fume inhalation disorder [None]
  - Passive smoking [None]
  - Intentional drug misuse [None]
